FAERS Safety Report 4707050-6 (Version None)
Quarter: 2005Q3

REPORT INFORMATION
  Report Type: 
  Country: None (occurrence: None)
  Receive Date: 20050706
  Receipt Date: 20050603
  Transmission Date: 20060218
  Serious: Yes (Death, Hospitalization)
  Sender: FDA-Public Use
  Company Number: PHBS2005JP08080

PATIENT
  Age: 73 Year
  Sex: Male
  Weight: 59 kg

DRUGS (7)
  1. VOLTAREN [Suspect]
     Indication: POSTOPERATIVE FEVER
     Dosage: 50 MG, ONCE/SINGLE
     Route: 054
     Dates: start: 20050601
  2. SOLU-MEDROL [Suspect]
     Indication: ANAPHYLACTIC REACTION
     Dosage: 500 MG, ONCE/SINGLE
     Route: 042
     Dates: start: 20050601
  3. EFFORTIL [Concomitant]
     Indication: BLOOD PRESSURE DECREASED
     Dosage: 6 MG/DAY
     Route: 042
     Dates: start: 20050601
  4. CATABON [Concomitant]
     Indication: BLOOD PRESSURE DECREASED
     Route: 042
     Dates: start: 20050601
  5. VEEN D [Concomitant]
     Route: 042
     Dates: start: 20050601
  6. ADONA [Concomitant]
     Route: 042
     Dates: start: 20050601
  7. GASTER [Concomitant]
     Route: 042
     Dates: start: 20050601

REACTIONS (12)
  - ANAPHYLACTIC SHOCK [None]
  - BRAIN HYPOXIA [None]
  - BRAIN OEDEMA [None]
  - CARDIO-RESPIRATORY ARREST [None]
  - ERYTHEMA [None]
  - GASTROINTESTINAL HAEMORRHAGE [None]
  - HEART VALVE STENOSIS [None]
  - HYPOTENSION [None]
  - LOSS OF CONSCIOUSNESS [None]
  - MYOCARDIAL INFARCTION [None]
  - VENTRICULAR TACHYCARDIA [None]
  - VOMITING [None]
